FAERS Safety Report 19984723 (Version 1)
Quarter: 2021Q4

REPORT INFORMATION
  Report Type: Spontaneous
  Country: US (occurrence: US)
  Receive Date: 20211022
  Receipt Date: 20211022
  Transmission Date: 20220303
  Serious: Yes (Hospitalization, Other)
  Sender: FDA-Public Use
  Company Number: US-MLMSERVICE-20211005-3137502-1

PATIENT
  Age: 61 Year
  Sex: Male

DRUGS (5)
  1. BUPRENORPHINE AND NALOXONE [Suspect]
     Active Substance: BUPRENORPHINE HYDROCHLORIDE\NALOXONE HYDROCHLORIDE
     Indication: Alcohol use disorder
     Dosage: ON HOSPITAL DAY EIGHT
     Route: 065
  2. BUPRENORPHINE AND NALOXONE [Suspect]
     Active Substance: BUPRENORPHINE HYDROCHLORIDE\NALOXONE HYDROCHLORIDE
     Indication: Drug use disorder
     Dosage: ON HOSPITAL DAY FOUR
     Route: 065
  3. MIRTAZAPINE [Concomitant]
     Active Substance: MIRTAZAPINE
     Indication: Product used for unknown indication
     Route: 065
  4. LEDIPASVIR [Concomitant]
     Active Substance: LEDIPASVIR
     Indication: Hepatitis C
     Dosage: UNKNOWN
     Route: 065
  5. SOFOSBUVIR [Concomitant]
     Active Substance: SOFOSBUVIR
     Indication: Hepatitis C
     Dosage: UNKNOWN
     Route: 065

REACTIONS (16)
  - Gait disturbance [Unknown]
  - Mental status changes [Unknown]
  - Hypertension [Unknown]
  - Cerebellar infarction [Unknown]
  - Cerebellar stroke [Unknown]
  - Delirium [Unknown]
  - Restlessness [Unknown]
  - Hallucination, visual [Unknown]
  - Abdominal pain [Unknown]
  - Myalgia [Unknown]
  - Nausea [Not Recovered/Not Resolved]
  - Drug withdrawal syndrome [Unknown]
  - Rhinorrhoea [Unknown]
  - Hyperhidrosis [Unknown]
  - Vomiting [Not Recovered/Not Resolved]
  - Drug intolerance [Unknown]
